FAERS Safety Report 11737845 (Version 1)
Quarter: 2015Q4

REPORT INFORMATION
  Report Type: Spontaneous
  Country: US (occurrence: US)
  Receive Date: 20151110
  Receipt Date: 20151110
  Transmission Date: 20160304
  Serious: No
  Sender: FDA-Public Use
  Company Number: US-ELI_LILLY_AND_COMPANY-US201207004605

PATIENT
  Age: 63 Year
  Sex: Female
  Weight: 52.6 kg

DRUGS (2)
  1. FORTEO [Suspect]
     Active Substance: TERIPARATIDE
     Dosage: UNK, QD
     Dates: start: 201201
  2. FORTEO [Suspect]
     Active Substance: TERIPARATIDE
     Indication: OSTEOPOROSIS
     Dosage: UNK, QD
     Dates: start: 201201

REACTIONS (6)
  - Skin wrinkling [Unknown]
  - Malaise [Unknown]
  - Fat tissue increased [Not Recovered/Not Resolved]
  - Frustration [Unknown]
  - Anger [Unknown]
  - Crying [Unknown]

NARRATIVE: CASE EVENT DATE: 201201
